FAERS Safety Report 4592560-5 (Version None)
Quarter: 2005Q1

REPORT INFORMATION
  Report Type: 
  Country: None (occurrence: None)
  Receive Date: 20050222
  Receipt Date: 20050203
  Transmission Date: 20050727
  Serious: No
  Sender: FDA-Public Use
  Company Number: 2005SE00783

PATIENT
  Sex: Male
  Weight: 75 kg

DRUGS (4)
  1. SEROQUEL [Suspect]
     Indication: MAJOR DEPRESSION
     Dosage: 200 MG DAILY PO
     Route: 048
  2. SEROQUEL [Suspect]
     Indication: MAJOR DEPRESSION
     Dosage: 100 MG DAILY PO
     Route: 048
  3. EFFEXOR XR [Concomitant]
  4. LAMICTAL [Concomitant]

REACTIONS (1)
  - BRONCHOSPASM [None]
